FAERS Safety Report 7827249-X (Version None)
Quarter: 2011Q4

REPORT INFORMATION
  Report Type: 
  Country: None (occurrence: None)
  Receive Date: 20111020
  Receipt Date: 20111014
  Transmission Date: 20120403
  Serious: Yes (Hospitalization, Other)
  Sender: FDA-Public Use
  Company Number: GB-BRISTOL-MYERS SQUIBB COMPANY-16171399

PATIENT
  Sex: Female
  Weight: 4 kg

DRUGS (1)
  1. ABILIFY [Suspect]
     Route: 064

REACTIONS (2)
  - RESPIRATORY DISTRESS [None]
  - HYPOGLYCAEMIA NEONATAL [None]
